FAERS Safety Report 5501653-7 (Version None)
Quarter: 2007Q4

REPORT INFORMATION
  Report Type: 
  Country: None (occurrence: None)
  Receive Date: 20071026
  Receipt Date: 20071026
  Transmission Date: 20080405
  Serious: No
  Sender: FDA-Public Use
  Company Number: None

PATIENT
  Age: 43 Year
  Sex: Female
  Weight: 47.6277 kg

DRUGS (1)
  1. DESIPRAMINE HCL [Suspect]
     Indication: DEPRESSION
     Dosage: 100MG QD PO
     Route: 048

REACTIONS (1)
  - IMPAIRED GASTRIC EMPTYING [None]
